FAERS Safety Report 20620894 (Version 1)
Quarter: 2022Q1

REPORT INFORMATION
  Report Type: Spontaneous
  Country: US (occurrence: None)
  Receive Date: 20220321
  Receipt Date: 20220321
  Transmission Date: 20220424
  Serious: Yes (Hospitalization)
  Sender: FDA-Public Use
  Company Number: None

PATIENT
  Sex: Female

DRUGS (19)
  1. AMBRISENTAN [Suspect]
     Active Substance: AMBRISENTAN
     Indication: Pulmonary arterial hypertension
     Dosage: FREQUENCY : DAILY;?
     Route: 048
  2. FUROSEMIDE [Concomitant]
     Active Substance: FUROSEMIDE
  3. VITAMIN D2 [Concomitant]
     Active Substance: ERGOCALCIFEROL
  4. VENTOLIN HFA [Concomitant]
     Active Substance: ALBUTEROL SULFATE
  5. SYMBICORT [Concomitant]
     Active Substance: BUDESONIDE\FORMOTEROL FUMARATE DIHYDRATE
  6. ASPIRIN [Concomitant]
     Active Substance: ASPIRIN
  7. ADCIRCA [Concomitant]
     Active Substance: TADALAFIL
  8. KLOR-CON M10 [Concomitant]
     Active Substance: POTASSIUM CHLORIDE
  9. VITAMIN D3 [Concomitant]
     Active Substance: CHOLECALCIFEROL
  10. GABAPENTIN [Concomitant]
     Active Substance: GABAPENTIN
  11. PREDNISONE [Concomitant]
     Active Substance: PREDNISONE
  12. LORATADINE [Concomitant]
     Active Substance: LORATADINE
  13. PLAQUENIL [Concomitant]
     Active Substance: HYDROXYCHLOROQUINE SULFATE
  14. MAGNESIUM [Concomitant]
     Active Substance: MAGNESIUM
  15. ALBUTEROL [Concomitant]
     Active Substance: ALBUTEROL
  16. OMEPRAZOLE [Concomitant]
     Active Substance: OMEPRAZOLE
  17. REVLIMID [Concomitant]
     Active Substance: LENALIDOMIDE
  18. HERBALS\TURMERIC [Concomitant]
     Active Substance: HERBALS\TURMERIC
  19. TADALAFIL [Concomitant]
     Active Substance: TADALAFIL

REACTIONS (4)
  - Product availability issue [None]
  - COVID-19 [None]
  - Pneumonia [None]
  - Syncope [None]
